FAERS Safety Report 23733431 (Version 1)
Quarter: 2024Q2

REPORT INFORMATION
  Report Type: Spontaneous
  Country: EC (occurrence: CL)
  Receive Date: 20240411
  Receipt Date: 20240411
  Transmission Date: 20240716
  Serious: Yes (Other)
  Sender: FDA-Public Use
  Company Number: EC-FreseniusKabi-FK202405752

PATIENT
  Age: 18 Year
  Sex: Female

DRUGS (5)
  1. MAGNESIUM SULFATE [Suspect]
     Active Substance: MAGNESIUM SULFATE\MAGNESIUM SULFATE HEPTAHYDRATE
     Indication: Nervous system disorder prophylaxis
     Dosage: FORM OF ADMIN: INFUSION
  2. BETAMETHASONE [Suspect]
     Active Substance: BETAMETHASONE\BETAMETHASONE DIPROPIONATE
     Indication: Maternal therapy to enhance foetal lung maturity
     Dosage: ROUTE OF ADMIN: INTRAMUSCULAR (IM)
  3. NIFEDIPINE [Suspect]
     Active Substance: NIFEDIPINE
     Indication: Tocolysis
     Dosage: ROA: ORAL
     Route: 048
  4. AMPICILLIN [Suspect]
     Active Substance: AMPICILLIN
     Indication: Premature labour
  5. ERYTHROMYCIN [Suspect]
     Active Substance: ERYTHROMYCIN
     Indication: Product used for unknown indication

REACTIONS (3)
  - Acute pulmonary oedema [Unknown]
  - Drug interaction [Unknown]
  - Maternal exposure during pregnancy [Unknown]
